FAERS Safety Report 14787976 (Version 1)
Quarter: 2018Q2

REPORT INFORMATION
  Report Type: Spontaneous
  Country: US (occurrence: US)
  Receive Date: 20180422
  Receipt Date: 20180422
  Transmission Date: 20180711
  Serious: No
  Sender: FDA-Public Use
  Company Number: US-DUCHESNAY INC.-2018US001790

PATIENT
  Age: 56 Year
  Sex: Female

DRUGS (3)
  1. TRIAMTERENE. [Concomitant]
     Active Substance: TRIAMTERENE
     Indication: BLOOD PRESSURE INCREASED
     Dosage: UNK
     Dates: start: 200005
  2. METOPROLOL. [Concomitant]
     Active Substance: METOPROLOL
     Indication: BLOOD PRESSURE INCREASED
     Dosage: UNK
     Dates: start: 200005
  3. OSPHENA [Suspect]
     Active Substance: OSPEMIFENE
     Indication: PRODUCT USED FOR UNKNOWN INDICATION
     Dosage: 60 MG, DAILY
     Route: 048

REACTIONS (2)
  - Blood pressure increased [Recovered/Resolved]
  - Oedema [Recovered/Resolved]

NARRATIVE: CASE EVENT DATE: 20180129
